FAERS Safety Report 5487282-2 (Version None)
Quarter: 2007Q4

REPORT INFORMATION
  Report Type: 
  Country: None (occurrence: None)
  Receive Date: 20071015
  Receipt Date: 20071002
  Transmission Date: 20080405
  Serious: Yes (Hospitalization)
  Sender: FDA-Public Use
  Company Number: GXBR2007US01667

PATIENT
  Age: 52 Year
  Sex: Male
  Weight: 98.4 kg

DRUGS (1)
  1. TRIFLUOPERAZINE HCL [Suspect]
     Indication: MENTAL DISORDER
     Dosage: 5 MG, QD2SDO, ORAL
     Route: 048
     Dates: start: 19900601

REACTIONS (1)
  - MYOCARDIAL INFARCTION [None]
